FAERS Safety Report 13846942 (Version 2)
Quarter: 2017Q4

REPORT INFORMATION
  Report Type: Spontaneous
  Country: US (occurrence: US)
  Receive Date: 20170808
  Receipt Date: 20171109
  Transmission Date: 20180320
  Serious: No
  Sender: FDA-Public Use
  Company Number: US-SA-2017SA124292

PATIENT
  Age: 43 Year
  Sex: Female
  Weight: 102 kg

DRUGS (1)
  1. XYZAL ALLERGY 24HR [Suspect]
     Active Substance: LEVOCETIRIZINE DIHYDROCHLORIDE
     Indication: MULTIPLE ALLERGIES
     Route: 048
     Dates: end: 20170702

REACTIONS (17)
  - Withdrawal syndrome [Not Recovered/Not Resolved]
  - Vision blurred [Not Recovered/Not Resolved]
  - Fatigue [Unknown]
  - Eye pruritus [Unknown]
  - Sneezing [Unknown]
  - Dizziness [Unknown]
  - Insomnia [Not Recovered/Not Resolved]
  - Motion sickness [Not Recovered/Not Resolved]
  - Visual impairment [Unknown]
  - Somnolence [Unknown]
  - Eye irritation [Unknown]
  - Pruritus [Not Recovered/Not Resolved]
  - Headache [Unknown]
  - Dry eye [Unknown]
  - Hypersensitivity [Unknown]
  - Lacrimation increased [Unknown]
  - Drug ineffective [Unknown]
